FAERS Safety Report 8976314 (Version 1)
Quarter: 2012Q4

REPORT INFORMATION
  Report Type: 
  Country: US (occurrence: US)
  Receive Date: 20121219
  Receipt Date: 20121219
  Transmission Date: 20130627
  Serious: No
  Sender: FDA-Public Use
  Company Number: US-AMGEN-USASP2012064765

PATIENT
  Age: 55 Year
  Sex: Female

DRUGS (2)
  1. PROLIA [Suspect]
     Indication: OSTEOPENIA
     Dosage: UNK
     Dates: start: 2012
  2. CALCIUM W/VITAMIN D                /00944201/ [Concomitant]
     Dosage: UNK

REACTIONS (3)
  - Toothache [Not Recovered/Not Resolved]
  - Tooth disorder [Unknown]
  - Arthralgia [Unknown]
